FAERS Safety Report 6332557-8 (Version None)
Quarter: 2009Q3

REPORT INFORMATION
  Report Type: 
  Country: None (occurrence: None)
  Receive Date: 20090828
  Receipt Date: 20090817
  Transmission Date: 20100115
  Serious: Yes (Life-Threatening, Hospitalization)
  Sender: FDA-Public Use
  Company Number: FR-PFIZER INC-2009247116

PATIENT
  Age: 61 Year

DRUGS (1)
  1. SUNITINIB MALATE [Suspect]
     Dosage: 50 MG, 1X/DAY
     Route: 048
     Dates: start: 20090606, end: 20090625

REACTIONS (8)
  - CARDIOMEGALY [None]
  - CYTOMEGALOVIRUS INFECTION [None]
  - EMPHYSEMA [None]
  - HAEMODIALYSIS [None]
  - HERPES VIRUS INFECTION [None]
  - ORGANISING PNEUMONIA [None]
  - RENAL IMPAIRMENT [None]
  - RESPIRATORY FAILURE [None]
